FAERS Safety Report 4783965-8 (Version None)
Quarter: 2005Q3

REPORT INFORMATION
  Report Type: 
  Country: None (occurrence: None)
  Receive Date: 20050927
  Receipt Date: 20050803
  Transmission Date: 20060218
  Serious: No
  Sender: FDA-Public Use
  Company Number: USA0508104506

PATIENT
  Age: 41 Year
  Sex: Male

DRUGS (7)
  1. STRATTERA [Suspect]
     Indication: APATHY
     Dosage: 40 MG/2 DAY
  2. STRATTERA [Suspect]
     Indication: IRRITABILITY
     Dosage: 40 MG/2 DAY
  3. MULTI-VITAMIN [Concomitant]
  4. ASCORBIC ACID [Concomitant]
  5. VITAMIN B COMPLEX CAP [Concomitant]
  6. VITAMIN E [Concomitant]
  7. GINKO BILOBA (GINKGO BILOBA) [Concomitant]

REACTIONS (3)
  - ABDOMINAL PAIN UPPER [None]
  - HEAD DISCOMFORT [None]
  - HEADACHE [None]
